FAERS Safety Report 24049258 (Version 3)
Quarter: 2024Q4

REPORT INFORMATION
  Report Type: Report from Study
  Country: CL (occurrence: CL)
  Receive Date: 20240704
  Receipt Date: 20241203
  Transmission Date: 20250115
  Serious: Yes (Hospitalization, Other)
  Sender: SANDOZ
  Company Number: CL-SANDOZ-SDZ2024CL062017

PATIENT
  Age: 62 Year
  Sex: Female

DRUGS (5)
  1. HYRIMOZ [Suspect]
     Active Substance: ADALIMUMAB-ADAZ
     Dosage: 40 MG, Q2W
     Route: 058
     Dates: start: 20240321, end: 20240515
  2. HYRIMOZ [Suspect]
     Active Substance: ADALIMUMAB-ADAZ
     Indication: Rheumatoid arthritis
     Dosage: 40 MG, Q2W
     Route: 058
     Dates: start: 20230322
  3. LEFLUNOMIDE [Suspect]
     Active Substance: LEFLUNOMIDE
     Indication: Product used for unknown indication
     Dosage: UNK
     Route: 065
  4. METHOTREXATE [Suspect]
     Active Substance: METHOTREXATE
     Indication: Product used for unknown indication
     Dosage: UNK
     Route: 065
  5. PREGABALIN [Suspect]
     Active Substance: PREGABALIN
     Indication: Product used for unknown indication
     Dosage: UNK
     Route: 065

REACTIONS (7)
  - Influenza [Recovering/Resolving]
  - Pneumonia fungal [Recovering/Resolving]
  - Illness [Recovering/Resolving]
  - Rhinorrhoea [Unknown]
  - Cough [Unknown]
  - Peripheral vascular disorder [Recovering/Resolving]
  - Peripheral swelling [Recovering/Resolving]

NARRATIVE: CASE EVENT DATE: 20240927
